FAERS Safety Report 9385986 (Version 3)
Quarter: 2013Q3

REPORT INFORMATION
  Report Type: Spontaneous
  Country: AR (occurrence: AR)
  Receive Date: 20130705
  Receipt Date: 20130712
  Transmission Date: 20140515
  Serious: Yes (Death, Other)
  Sender: FDA-Public Use
  Company Number: AR-ASTRAZENECA-2013SE50367

PATIENT
  Age: 60 Year
  Sex: Male

DRUGS (5)
  1. BRILINTA [Suspect]
     Indication: ANTIPLATELET THERAPY
     Route: 048
  2. BRILINTA [Suspect]
     Indication: ACUTE MYOCARDIAL INFARCTION
     Route: 048
  3. ASPIRIN [Concomitant]
     Indication: ANTIPLATELET THERAPY
  4. HEPARIN [Concomitant]
     Indication: ANTICOAGULANT THERAPY
  5. RTPA [Concomitant]

REACTIONS (6)
  - Haemorrhage intracranial [Fatal]
  - Aphasia [Unknown]
  - Depressed level of consciousness [Unknown]
  - Coma [Unknown]
  - Intracranial aneurysm [Unknown]
  - Head injury [Unknown]
